FAERS Safety Report 20476466 (Version 1)
Quarter: 2022Q1

REPORT INFORMATION
  Report Type: Spontaneous
  Country: AU (occurrence: AU)
  Receive Date: 20220215
  Receipt Date: 20220215
  Transmission Date: 20220423
  Serious: Yes (Other)
  Sender: FDA-Public Use
  Company Number: AU-TEVA-2022-AU-2008147

PATIENT
  Age: 50 Year
  Sex: Female

DRUGS (7)
  1. PROVIGIL [Suspect]
     Active Substance: MODAFINIL
     Indication: Multiple sclerosis
     Route: 065
  2. PROVIGIL [Suspect]
     Active Substance: MODAFINIL
     Indication: Fatigue
  3. LYRICA [Suspect]
     Active Substance: PREGABALIN
     Indication: Multiple sclerosis
     Route: 065
  4. LYRICA [Suspect]
     Active Substance: PREGABALIN
     Indication: Pain
  5. TYSABRI [Suspect]
     Active Substance: NATALIZUMAB
     Indication: Multiple sclerosis
     Route: 065
  6. METHYLPREDNISOLONE [Concomitant]
     Active Substance: METHYLPREDNISOLONE
     Route: 065
  7. PREDNISOLONE [Concomitant]
     Active Substance: PREDNISOLONE
     Route: 065

REACTIONS (1)
  - Tooth fracture [Not Recovered/Not Resolved]

NARRATIVE: CASE EVENT DATE: 20120101
